FAERS Safety Report 8790949 (Version 1)
Quarter: 2012Q4

REPORT INFORMATION
  Report Type: Spontaneous
  Country: DE (occurrence: None)
  Receive Date: 20120910
  Receipt Date: 20120910
  Transmission Date: 20130627
  Serious: Yes (Other)
  Sender: FDA-Public Use
  Company Number: AUR-APL-2012-03853

PATIENT
  Sex: Female
  Weight: 132 kg

DRUGS (6)
  1. RAMIPRIL (RAMIPRIL) [Suspect]
     Indication: HYPERTENSION ARTERIAL
     Route: 048
  2. AMLODIPINE (AMLODIPINE) [Suspect]
     Indication: HYPERTENSION ARTERIAL
     Route: 048
     Dates: start: 20120111, end: 20120111
  3. RASILAMLO [Suspect]
     Indication: HYPERTENSION ARTERIAL
     Route: 048
  4. EXFORGE HCT [Suspect]
     Indication: HYPERTENSION ARTERIAL
     Route: 048
  5. MICARDIS [Suspect]
     Indication: HYPERTENSION ARTERIAL
     Route: 048
  6. THYRONAJOD (JODTHYROX) [Concomitant]

REACTIONS (3)
  - Lip swelling [None]
  - Paraesthesia oral [None]
  - Palatal oedema [None]
